FAERS Safety Report 5233408-5 (Version None)
Quarter: 2007Q1

REPORT INFORMATION
  Report Type: 
  Country: None (occurrence: None)
  Receive Date: 20070208
  Receipt Date: 20070201
  Transmission Date: 20070707
  Serious: Yes (Death, Hospitalization)
  Sender: FDA-Public Use
  Company Number: PHHO2007BE02416

PATIENT
  Age: 80 Year
  Sex: Male

DRUGS (2)
  1. DIOVAN [Suspect]
     Indication: HYPERTENSION
     Route: 048
  2. LEUKERAN [Suspect]

REACTIONS (5)
  - ANGIOEDEMA [None]
  - CARDIAC ARREST [None]
  - FOOD ALLERGY [None]
  - PNEUMONIA [None]
  - RESUSCITATION [None]
